FAERS Safety Report 12676140 (Version 1)
Quarter: 2016Q3

REPORT INFORMATION
  Report Type: Spontaneous
  Country: US (occurrence: None)
  Receive Date: 20160822
  Receipt Date: 20160822
  Transmission Date: 20161109
  Serious: Yes (Disabling, Other)
  Sender: FDA-Public Use
  Company Number: None

PATIENT
  Age: 63 Year
  Sex: Female
  Weight: 85.73 kg

DRUGS (2)
  1. PREDNISOLONE, 5 % [Suspect]
     Active Substance: PREDNISOLONE
     Indication: CATARACT OPERATION
     Route: 047
     Dates: start: 20160705
  2. METFORMIN [Concomitant]
     Active Substance: METFORMIN HYDROCHLORIDE

REACTIONS (5)
  - Depression [None]
  - Mental impairment [None]
  - Eye pain [None]
  - Confusional state [None]
  - Ocular hyperaemia [None]

NARRATIVE: CASE EVENT DATE: 20160801
